FAERS Safety Report 10766664 (Version 2)
Quarter: 2015Q1

REPORT INFORMATION
  Report Type: Spontaneous
  Country: AU (occurrence: AU)
  Receive Date: 20150205
  Receipt Date: 20150210
  Transmission Date: 20150721
  Serious: Yes (Death, Other)
  Sender: FDA-Public Use
  Company Number: AU-BAYER-2015-013401

PATIENT
  Age: 28 Year
  Sex: Female

DRUGS (1)
  1. YASMIN [Suspect]
     Active Substance: DROSPIRENONE\ETHINYL ESTRADIOL
     Dosage: UNK
     Route: 048
     Dates: start: 200911

REACTIONS (14)
  - Cardiac arrest [Fatal]
  - Pulmonary embolism [None]
  - Dyspnoea [None]
  - Tachycardia [None]
  - Fatigue [None]
  - Myocardial infarction [Fatal]
  - Chest pain [None]
  - Dizziness [None]
  - Exercise tolerance decreased [None]
  - Cardiac disorder [None]
  - Circulatory collapse [None]
  - Pulmonary thrombosis [None]
  - Brain hypoxia [Fatal]
  - Pulmonary hypertension [Fatal]

NARRATIVE: CASE EVENT DATE: 20100509
